FAERS Safety Report 5040660-8 (Version None)
Quarter: 2006Q2

REPORT INFORMATION
  Report Type: 
  Country: None (occurrence: None)
  Receive Date: 20060629
  Receipt Date: 20060629
  Transmission Date: 20061013
  Serious: Yes (Hospitalization)
  Sender: FDA-Public Use
  Company Number: None

PATIENT
  Age: 68 Year
  Sex: Male
  Weight: 87 kg

DRUGS (1)
  1. NPH INSULIN [Suspect]
     Dosage: 10 UNITS SQ HS
     Route: 058
     Dates: start: 20060612

REACTIONS (6)
  - ASTHENIA [None]
  - BLOOD GLUCOSE DECREASED [None]
  - CONFUSIONAL STATE [None]
  - FATIGUE [None]
  - HYPERHIDROSIS [None]
  - LETHARGY [None]
